FAERS Safety Report 18688056 (Version 1)
Quarter: 2020Q4

REPORT INFORMATION
  Report Type: Spontaneous
  Country: US (occurrence: US)
  Receive Date: 20201229
  Receipt Date: 20201229
  Transmission Date: 20210114
  Serious: Yes (Death)
  Sender: FDA-Public Use
  Company Number: None

PATIENT
  Age: 73 Year
  Sex: Female

DRUGS (20)
  1. CEPHALEXIN. [Concomitant]
     Active Substance: CEPHALEXIN
  2. GABAPENTIN. [Concomitant]
     Active Substance: GABAPENTIN
  3. VALSART/HCTZ [Concomitant]
  4. PRAVASTATIN. [Concomitant]
     Active Substance: PRAVASTATIN
  5. TRAZODONE [Concomitant]
     Active Substance: TRAZODONE HYDROCHLORIDE
  6. FLUCONAZOLE. [Concomitant]
     Active Substance: FLUCONAZOLE
  7. ATORVASTATIN [Concomitant]
     Active Substance: ATORVASTATIN
  8. CLONIDINE. [Concomitant]
     Active Substance: CLONIDINE
  9. IRBESARTAN. [Concomitant]
     Active Substance: IRBESARTAN
  10. OXYCODONE [Concomitant]
     Active Substance: OXYCODONE
  11. ESBRIET [Suspect]
     Active Substance: PIRFENIDONE
     Indication: IDIOPATHIC PULMONARY FIBROSIS
     Route: 048
     Dates: start: 20190504, end: 20201222
  12. CLINDAMYCIN. [Concomitant]
     Active Substance: CLINDAMYCIN
  13. CLOPIDOGREL [Concomitant]
     Active Substance: CLOPIDOGREL BISULFATE
  14. METOPROL TAR [Concomitant]
  15. MUPIROCIN. [Concomitant]
     Active Substance: MUPIROCIN
  16. ESTRADIOL. [Concomitant]
     Active Substance: ESTRADIOL
  17. PROPAFENONE. [Concomitant]
     Active Substance: PROPAFENONE
  18. ROPINIROLE. [Concomitant]
     Active Substance: ROPINIROLE
  19. FLUOXETINE [Concomitant]
     Active Substance: FLUOXETINE HYDROCHLORIDE
  20. LEVOTHYROXIN [Concomitant]
     Active Substance: LEVOTHYROXINE

REACTIONS (1)
  - Death [None]

NARRATIVE: CASE EVENT DATE: 20201222
